FAERS Safety Report 4783646-0 (Version None)
Quarter: 2005Q3

REPORT INFORMATION
  Report Type: 
  Country: None (occurrence: None)
  Receive Date: 20050928
  Receipt Date: 20050919
  Transmission Date: 20060218
  Serious: Yes (Hospitalization, Other)
  Sender: FDA-Public Use
  Company Number: 2005-07-0430

PATIENT
  Age: 48 Year
  Sex: Female
  Weight: 65 kg

DRUGS (7)
  1. TEMODAL [Suspect]
     Indication: GLIOBLASTOMA
     Dosage: SEE IMAGE
     Route: 048
     Dates: start: 20050411, end: 20050518
  2. TEMODAL [Suspect]
     Indication: GLIOBLASTOMA
     Dosage: SEE IMAGE
     Route: 048
     Dates: start: 20050411, end: 20050614
  3. TEMODAL [Suspect]
     Indication: GLIOBLASTOMA
     Dosage: SEE IMAGE
     Route: 048
     Dates: start: 20050613, end: 20050614
  4. RADIATION THERAPY [Concomitant]
  5. BACTRIM [Concomitant]
  6. DEPAKINE CHRONO (SODIUM VALPROATE) [Concomitant]
  7. HEPT-A-MYL TABLETS [Concomitant]

REACTIONS (4)
  - ANGIONEUROTIC OEDEMA [None]
  - CYTOLYTIC HEPATITIS [None]
  - DRUG HYPERSENSITIVITY [None]
  - TOXIC SKIN ERUPTION [None]
